FAERS Safety Report 15033946 (Version 5)
Quarter: 2018Q4

REPORT INFORMATION
  Report Type: Spontaneous
  Country: FR (occurrence: ES)
  Receive Date: 20180620
  Receipt Date: 20181004
  Transmission Date: 20190204
  Serious: Yes (Life-Threatening, Hospitalization, Other)
  Sender: FDA-Public Use
  Company Number: ES-TEVA-2018-ES-909880

PATIENT
  Age: 22 Year
  Sex: Male

DRUGS (14)
  1. PNEUMOCOCCAL VACCINE POLYVALENT NOS [Concomitant]
     Active Substance: PNEUMOCOCCAL VACCINE POLYVALENT
     Indication: PROPHYLAXIS
     Route: 065
     Dates: start: 20171004, end: 20171004
  2. HAEMOPHILUS INFLUENZAE TYPE B [Concomitant]
     Active Substance: HAEMOPHILUS INFLUENZAE TYPE B
     Indication: PROPHYLAXIS
     Dates: start: 20171004, end: 20171004
  3. SOLIRIS [Suspect]
     Active Substance: ECULIZUMAB
     Indication: HAEMOLYTIC URAEMIC SYNDROME
     Dosage: 1200 MG, EVERY 14 DAYS
     Route: 065
     Dates: start: 20171102
  4. HAEMOPHILUS INFLUENZAE VACCINE SOLUTION FOR INJECTION [Suspect]
     Active Substance: HAEMOPHILUS INFLUENZAE TYPE B
     Indication: PROPHYLAXIS
     Route: 065
     Dates: start: 20171004, end: 20171004
  5. CEFTRIAXONA (501A) [Concomitant]
     Active Substance: CEFTRIAXONE
     Route: 065
     Dates: start: 20171004, end: 20171019
  6. BEXSERO [Suspect]
     Active Substance: MENINGOCOCCAL GROUP B VACCINE
     Indication: MENINGOCOCCAL IMMUNISATION
     Dosage: 1 DOSAGE FORMS DAILY;
     Route: 058
     Dates: start: 20171004, end: 20171004
  7. CEFTRIAXONA (501A) [Concomitant]
     Active Substance: CEFTRIAXONE
     Indication: PROPHYLAXIS
     Dosage: 1 GRAM DAILY;
     Route: 042
     Dates: start: 20171031, end: 20171109
  8. SOLIRIS [Suspect]
     Active Substance: ECULIZUMAB
     Indication: ATYPICAL HAEMOLYTIC URAEMIC SYNDROME
     Dosage: 900 UNK, QW
     Route: 042
     Dates: start: 20171004, end: 20171018
  9. BEXSERO [Suspect]
     Active Substance: MENINGOCOCCAL GROUP B VACCINE
     Indication: PROPHYLAXIS
  10. PNEUMOCOCCAL VACCINE POLYVALENT NOS [Suspect]
     Active Substance: PNEUMOCOCCAL VACCINE POLYVALENT
     Indication: PROPHYLAXIS
     Route: 065
     Dates: start: 20171004, end: 20171004
  11. FUROSEMIDA /00032601/ [Concomitant]
     Active Substance: FUROSEMIDE
     Indication: HAEMOLYTIC URAEMIC SYNDROME
     Dosage: 80 MILLIGRAM DAILY;
     Route: 048
     Dates: start: 20171011, end: 20171031
  12. CEFTRIAXONA (501A) [Concomitant]
     Active Substance: CEFTRIAXONE
     Indication: MENINGOCOCCAL INFECTION
     Dosage: 1 GRAM DAILY;
     Route: 042
     Dates: start: 20171004, end: 20171012
  13. COLCHICINE. [Concomitant]
     Active Substance: COLCHICINE
     Indication: PRODUCT USED FOR UNKNOWN INDICATION
     Route: 065
  14. PREDNISONA (886A) [Suspect]
     Active Substance: PREDNISONE
     Indication: HAEMOLYTIC URAEMIC SYNDROME
     Dosage: 10 MILLIGRAM DAILY;
     Route: 048
     Dates: start: 20171011, end: 20171018

REACTIONS (3)
  - Hypervolaemia [Unknown]
  - Cardiac failure [Unknown]
  - Meningococcal bacteraemia [Recovered/Resolved]

NARRATIVE: CASE EVENT DATE: 20171031
